FAERS Safety Report 25148329 (Version 1)
Quarter: 2025Q2

REPORT INFORMATION
  Report Type: Spontaneous
  Country: US (occurrence: US)
  Receive Date: 20250402
  Receipt Date: 20250402
  Transmission Date: 20250716
  Serious: No
  Sender: MERCK SHARP AND DOHME
  Company Number: US-009507513-2268269

PATIENT
  Sex: Male

DRUGS (1)
  1. WELIREG [Suspect]
     Active Substance: BELZUTIFAN
     Indication: Metastatic renal cell carcinoma

REACTIONS (3)
  - Hypervolaemia [Unknown]
  - Peripheral swelling [Unknown]
  - Generalised oedema [Unknown]
